FAERS Safety Report 9553585 (Version 1)
Quarter: 2013Q3

REPORT INFORMATION
  Report Type: Spontaneous
  Country: US (occurrence: US)
  Receive Date: 20130925
  Receipt Date: 20130925
  Transmission Date: 20140515
  Serious: Yes (Other)
  Sender: FDA-Public Use
  Company Number: US-PFIZER INC-2013270218

PATIENT
  Age: 80 Year
  Sex: Male

DRUGS (1)
  1. TOVIAZ [Suspect]
     Dosage: UNK

REACTIONS (3)
  - Muscle twitching [Not Recovered/Not Resolved]
  - Dysphagia [Not Recovered/Not Resolved]
  - Mastication disorder [Not Recovered/Not Resolved]
